FAERS Safety Report 6889280-0 (Version None)
Quarter: 2010Q3

REPORT INFORMATION
  Report Type: 
  Country: None (occurrence: None)
  Receive Date: 20100730
  Receipt Date: 20080122
  Transmission Date: 20110219
  Serious: No
  Sender: FDA-Public Use
  Company Number: US-PFIZER INC-2008006906

PATIENT
  Sex: Male

DRUGS (3)
  1. LIPITOR [Suspect]
     Indication: BLOOD CHOLESTEROL
     Dates: start: 20070101, end: 20070101
  2. MS CONTIN [Concomitant]
     Route: 048
  3. AVANDIA [Concomitant]
     Route: 048

REACTIONS (2)
  - FEELING COLD [None]
  - MYALGIA [None]
